FAERS Safety Report 12112320 (Version 1)
Quarter: 2016Q1

REPORT INFORMATION
  Report Type: Spontaneous
  Country: US (occurrence: US)
  Receive Date: 20160224
  Receipt Date: 20160224
  Transmission Date: 20160526
  Serious: No
  Sender: FDA-Public Use
  Company Number: US-ACORDA-ACO_115219_2015

PATIENT
  Sex: Male
  Weight: 64.4 kg

DRUGS (4)
  1. AMPYRA [Suspect]
     Active Substance: DALFAMPRIDINE
     Indication: PRODUCT USED FOR UNKNOWN INDICATION
     Dosage: 10 MG, BID
     Route: 048
     Dates: start: 20141218
  2. ASA [Concomitant]
     Active Substance: ASPIRIN
     Indication: CEREBROVASCULAR ACCIDENT
     Dosage: 81 MG, QD
     Route: 048
     Dates: start: 20121218
  3. NUVIGIL [Concomitant]
     Active Substance: ARMODAFINIL
     Indication: MULTIPLE SCLEROSIS
     Dosage: 150 MG, QD
     Route: 048
     Dates: start: 20120830
  4. COPAXONE [Concomitant]
     Active Substance: GLATIRAMER ACETATE
     Indication: MULTIPLE SCLEROSIS
     Dosage: 40 MG, 3X/WK
     Route: 030
     Dates: start: 20121212

REACTIONS (1)
  - Dyspepsia [Unknown]
